FAERS Safety Report 20315021 (Version 1)
Quarter: 2022Q1

REPORT INFORMATION
  Report Type: Other
  Country: US (occurrence: None)
  Receive Date: 20220110
  Receipt Date: 20220110
  Transmission Date: 20220424
  Serious: Yes (Hospitalization)
  Sender: FDA-Public Use
  Company Number: US-ROCHE-2731848

PATIENT
  Age: 67 Year
  Sex: Male

DRUGS (27)
  1. RITUXIMAB [Suspect]
     Active Substance: RITUXIMAB
     Indication: Prophylaxis against transplant rejection
     Route: 065
     Dates: start: 20191029
  2. RITUXIMAB [Suspect]
     Active Substance: RITUXIMAB
     Route: 065
     Dates: start: 20191105
  3. RITUXIMAB [Suspect]
     Active Substance: RITUXIMAB
     Route: 065
     Dates: start: 20191112
  4. RUXOLITINIB [Suspect]
     Active Substance: RUXOLITINIB
     Indication: Prophylaxis against transplant rejection
     Route: 065
     Dates: start: 20191210, end: 20191226
  5. RUXOLITINIB [Suspect]
     Active Substance: RUXOLITINIB
     Route: 065
     Dates: start: 20191226, end: 20200123
  6. RUXOLITINIB [Suspect]
     Active Substance: RUXOLITINIB
     Route: 065
     Dates: start: 20200123, end: 20200130
  7. METHOTREXATE [Suspect]
     Active Substance: METHOTREXATE
     Indication: Prophylaxis against graft versus host disease
     Route: 065
  8. TACROLIMUS [Suspect]
     Active Substance: TACROLIMUS
     Indication: Prophylaxis against graft versus host disease
     Route: 065
  9. PREDNISONE [Suspect]
     Active Substance: PREDNISONE
     Indication: Prophylaxis against transplant rejection
     Route: 065
     Dates: start: 20190627, end: 20200423
  10. IBRUTINIB [Suspect]
     Active Substance: IBRUTINIB
     Indication: Prophylaxis against transplant rejection
     Route: 065
     Dates: start: 20200303, end: 20200319
  11. IBRUTINIB [Suspect]
     Active Substance: IBRUTINIB
     Route: 065
     Dates: start: 20200327, end: 20200414
  12. DAUNORUBICIN [Suspect]
     Active Substance: DAUNORUBICIN
     Indication: Prophylaxis against transplant rejection
     Route: 065
  13. CYTARABINE [Suspect]
     Active Substance: CYTARABINE
     Indication: Prophylaxis against transplant rejection
     Route: 065
  14. VENETOCLAX [Suspect]
     Active Substance: VENETOCLAX
     Indication: Prophylaxis against transplant rejection
     Route: 065
  15. DECITABINE [Suspect]
     Active Substance: DECITABINE
     Indication: Prophylaxis against transplant rejection
     Route: 065
  16. CEFTRIAXONE [Concomitant]
     Active Substance: CEFTRIAXONE
     Indication: Pneumonia
  17. FLUDARABINE [Concomitant]
     Active Substance: FLUDARABINE PHOSPHATE
  18. ACYCLOVIR [Concomitant]
     Active Substance: ACYCLOVIR
  19. LETERMOVIR [Concomitant]
     Active Substance: LETERMOVIR
  20. DOXYCYCLINE [Concomitant]
     Active Substance: DOXYCYCLINE
  21. VORICONAZOLE [Concomitant]
     Active Substance: VORICONAZOLE
  22. PENTAMIDINE [Concomitant]
     Active Substance: PENTAMIDINE
  23. SULFAMETHOXAZOLE\TRIMETHOPRIM [Concomitant]
     Active Substance: SULFAMETHOXAZOLE\TRIMETHOPRIM
     Route: 042
  24. POSACONAZOLE [Concomitant]
     Active Substance: POSACONAZOLE
  25. AMIODARONE [Concomitant]
     Active Substance: AMIODARONE
  26. AMPHOTERICIN B [Concomitant]
     Active Substance: AMPHOTERICIN B
  27. ISAVUCONAZOLE [Concomitant]
     Active Substance: ISAVUCONAZOLE

REACTIONS (4)
  - COVID-19 [Unknown]
  - Stenotrophomonas infection [Unknown]
  - Rhinovirus infection [Unknown]
  - Enterovirus infection [Unknown]
